FAERS Safety Report 4556367-7 (Version None)
Quarter: 2005Q1

REPORT INFORMATION
  Report Type: 
  Country: None (occurrence: None)
  Receive Date: 20050103
  Receipt Date: 20040816
  Transmission Date: 20050727
  Serious: Yes (Other)
  Sender: FDA-Public Use
  Company Number: 2004UW17389

PATIENT
  Age: 74 Year
  Sex: Female
  Weight: 76.2043 kg

DRUGS (13)
  1. CRESTOR [Suspect]
     Indication: BLOOD CHOLESTEROL INCREASED
     Dosage: 20 MG PO
     Route: 048
     Dates: end: 20040517
  2. ZETIA [Concomitant]
  3. ASPIRIN [Concomitant]
  4. ALTACE [Concomitant]
  5. VITAMIN C [Concomitant]
  6. OSCAL [Concomitant]
  7. VITAMIN E [Concomitant]
  8. GLUCOSAMINE / CHONDROITIN [Concomitant]
  9. BUSPIRONE [Concomitant]
  10. COD LIVER OIL W/ A+D [Concomitant]
  11. MOBIC [Concomitant]
  12. BEXTRA [Concomitant]
  13. ZOLOFT [Concomitant]

REACTIONS (5)
  - BLOOD CHOLESTEROL INCREASED [None]
  - DIFFICULTY IN WALKING [None]
  - DYSURIA [None]
  - FATIGUE [None]
  - WALKING AID USER [None]
